FAERS Safety Report 10120966 (Version 1)
Quarter: 2014Q2

REPORT INFORMATION
  Report Type: Spontaneous
  Country: US (occurrence: US)
  Receive Date: 20140425
  Receipt Date: 20140425
  Transmission Date: 20141212
  Serious: Yes (Hospitalization)
  Sender: FDA-Public Use
  Company Number: US-GLAXOSMITHKLINE-A1070119A

PATIENT
  Age: 63 Year
  Sex: Female

DRUGS (12)
  1. ADVAIR DISKUS [Suspect]
     Indication: CHRONIC OBSTRUCTIVE PULMONARY DISEASE
     Dosage: 1PUFF TWICE PER DAY
     Route: 055
     Dates: start: 2003, end: 200803
  2. BREO ELLIPTA [Suspect]
     Indication: EMPHYSEMA
     Dosage: 1PUFF PER DAY
     Route: 055
     Dates: start: 20140404, end: 20140414
  3. SYMBICORT [Suspect]
     Indication: CHRONIC OBSTRUCTIVE PULMONARY DISEASE
     Route: 065
  4. OXYGEN [Concomitant]
  5. COMBIVENT [Concomitant]
  6. METHOTREXATE [Concomitant]
  7. SULFACETAMIDE [Concomitant]
  8. FOLIC ACID [Concomitant]
  9. NABUMETONE [Concomitant]
  10. PRO-AIR [Concomitant]
  11. EYE DROPS [Concomitant]
     Indication: GLAUCOMA
  12. SPIRIVA [Concomitant]

REACTIONS (7)
  - Pneumonia [Recovered/Resolved]
  - Glaucoma [Unknown]
  - Chest discomfort [Recovered/Resolved]
  - Dyspnoea [Recovered/Resolved]
  - Dyspnoea exertional [Recovered/Resolved]
  - Inhalation therapy [Recovered/Resolved]
  - Drug ineffective [Recovered/Resolved]
